FAERS Safety Report 6179710-4 (Version None)
Quarter: 2009Q2

REPORT INFORMATION
  Report Type: 
  Country: None (occurrence: None)
  Receive Date: 20090505
  Receipt Date: 20090429
  Transmission Date: 20091009
  Serious: Yes (Hospitalization)
  Sender: FDA-Public Use
  Company Number: CA-ELI_LILLY_AND_COMPANY-CA200904007249

PATIENT
  Sex: Female

DRUGS (11)
  1. HUMULIN N [Suspect]
     Dosage: 100 U, DAILY (1/D)
     Route: 058
     Dates: start: 20000101
  2. HUMULIN R [Suspect]
     Indication: DIABETES MELLITUS
     Dosage: 44 U, DAILY (1/D)
     Dates: start: 20000101
  3. RIVAROXABAN [Concomitant]
     Indication: EMBOLISM
     Dosage: 15 MG, 2/D
     Dates: start: 20081120, end: 20081211
  4. RIVAROXABAN [Concomitant]
     Dosage: 20 MG, DAILY (1/D)
     Dates: start: 20081212, end: 20090405
  5. FENOFIBRATE [Concomitant]
     Indication: HYPERCHOLESTEROLAEMIA
     Dosage: 160 MG, DAILY (1/D)
     Route: 048
     Dates: start: 20000101
  6. VITAMIN D [Concomitant]
     Dosage: 1000 IU, DAILY (1/D)
     Route: 048
     Dates: start: 20070101
  7. RAMIPRIL [Concomitant]
     Indication: HYPERTENSION
     Dosage: 10 MG, DAILY (1/D)
     Route: 048
     Dates: start: 20000101
  8. CRESTOR [Concomitant]
     Indication: HYPERCHOLESTEROLAEMIA
     Dosage: 10 MG, DAILY (1/D)
     Route: 048
     Dates: start: 20080801
  9. LABETALOL HCL [Concomitant]
     Indication: HYPERTENSION
     Dosage: 200 MG, DAILY (1/D)
     Route: 048
     Dates: start: 20000101
  10. ASPIRIN [Concomitant]
     Dosage: 81 MG, DAILY (1/D)
     Route: 048
     Dates: start: 20070101
  11. MULTI-VITAMIN [Concomitant]
     Route: 048
     Dates: start: 20000101

REACTIONS (3)
  - PELVIC MASS [None]
  - SOFT TISSUE INFECTION [None]
  - WOUND INFECTION STAPHYLOCOCCAL [None]
